FAERS Safety Report 7039127-7 (Version None)
Quarter: 2010Q4

REPORT INFORMATION
  Report Type: 
  Country: None (occurrence: None)
  Receive Date: 20101012
  Receipt Date: 20101004
  Transmission Date: 20110411
  Serious: Yes (Hospitalization, Disabling, Other)
  Sender: FDA-Public Use
  Company Number: US-TEVA-250580USA

PATIENT
  Sex: Male

DRUGS (1)
  1. ZOLPIDEM TARTRATE [Suspect]

REACTIONS (15)
  - BRAIN OEDEMA [None]
  - FACIAL BONES FRACTURE [None]
  - HEAD INJURY [None]
  - HYPOXIA [None]
  - IMPAIRED DRIVING ABILITY [None]
  - LACERATION [None]
  - LUMBAR VERTEBRAL FRACTURE [None]
  - MULTIPLE INJURIES [None]
  - RADIUS FRACTURE [None]
  - RIB FRACTURE [None]
  - ROAD TRAFFIC ACCIDENT [None]
  - SKULL FRACTURE [None]
  - SOFT TISSUE INFLAMMATION [None]
  - TRAUMATIC LUNG INJURY [None]
  - ULNA FRACTURE [None]
